FAERS Safety Report 9402009 (Version 2)
Quarter: 2013Q3

REPORT INFORMATION
  Report Type: Spontaneous
  Country: FR (occurrence: FR)
  Receive Date: 20130716
  Receipt Date: 20130814
  Transmission Date: 20140515
  Serious: Yes (Hospitalization)
  Sender: FDA-Public Use
  Company Number: PHHY2013FR074803

PATIENT
  Age: 79 Year
  Sex: Male

DRUGS (10)
  1. CIBACEN [Suspect]
     Dosage: 10 MG/ ONE IN ONE DAY
     Route: 048
     Dates: end: 20130628
  2. FUROSEMIDE [Concomitant]
     Dosage: 40 MG, UNK
  3. DIFFU-K [Concomitant]
     Dosage: UNK UKN, UNK
  4. XYZALL [Concomitant]
     Dosage: UNK UKN, UNK
  5. LOXEN 50 [Concomitant]
     Dosage: UNK UKN, UNK
  6. SERETIDE [Concomitant]
     Dosage: UNK UKN, UNK
  7. VENTOLINE [Concomitant]
     Dosage: UNK UKN, UNK
  8. LANSOPRAZOLE [Concomitant]
     Dosage: UNK UKN, UNK
  9. ZOXON [Concomitant]
     Dosage: UNK UKN, UNK
  10. TRIMETAZIDINE [Concomitant]
     Dosage: UNK UKN, UNK

REACTIONS (4)
  - Angioedema [Recovered/Resolved]
  - Lip oedema [Recovering/Resolving]
  - Tongue oedema [Recovering/Resolving]
  - Face oedema [Unknown]
